FAERS Safety Report 11836118 (Version 1)
Quarter: 2015Q4

REPORT INFORMATION
  Report Type: Spontaneous
  Country: FR (occurrence: FR)
  Receive Date: 20151215
  Receipt Date: 20151215
  Transmission Date: 20160305
  Serious: Yes (Other)
  Sender: FDA-Public Use
  Company Number: FR-BIOVITRUM-2015FR0743

PATIENT
  Age: 15 Year
  Sex: Female

DRUGS (1)
  1. KINERET [Suspect]
     Active Substance: ANAKINRA
     Indication: AUTOINFLAMMATORY DISEASE

REACTIONS (7)
  - Urticaria [Recovering/Resolving]
  - Drug eruption [Recovering/Resolving]
  - Eosinophilia [Unknown]
  - Hepatocellular injury [Unknown]
  - Dermatitis [Recovering/Resolving]
  - Off label use [Unknown]
  - Injection site reaction [Unknown]
